FAERS Safety Report 17345824 (Version 1)
Quarter: 2020Q1

REPORT INFORMATION
  Report Type: Spontaneous
  Country: NO (occurrence: NO)
  Receive Date: 20200129
  Receipt Date: 20200129
  Transmission Date: 20200409
  Serious: Yes (Other)
  Sender: FDA-Public Use
  Company Number: NO-SAMSUNG BIOEPIS-SB-2020-02320

PATIENT
  Age: 51 Year
  Sex: Male

DRUGS (3)
  1. BENEPALI [Suspect]
     Active Substance: ETANERCEPT
     Indication: APHTHOUS ULCER
     Dosage: FROM -SEP-2017: 25 MG X 2 PER WEEK AND FROM SPRING 2018: 50 MG WEEK
     Route: 058
     Dates: start: 201709
  2. BENEPALI [Suspect]
     Active Substance: ETANERCEPT
     Dosage: FROM -SEP-2017: 25 MG X 2 PER WEEK AND FROM SPRING 2018: 50 MG WEEK
     Route: 058
     Dates: start: 2018, end: 201811
  3. CLOBETASOL [Concomitant]
     Active Substance: CLOBETASOL
     Indication: APHTHOUS ULCER
     Dosage: UNKNOWN (MOUTH GEL, 2 OR MORE TIMES DAILY AS NEEDED)
     Route: 065
     Dates: start: 20181213

REACTIONS (5)
  - Demyelination [Recovering/Resolving]
  - Hypoaesthesia [Recovering/Resolving]
  - Temperature intolerance [Recovering/Resolving]
  - Product use in unapproved indication [Unknown]
  - Tremor [Recovering/Resolving]

NARRATIVE: CASE EVENT DATE: 2018
